FAERS Safety Report 22025797 (Version 1)
Quarter: 2023Q1

REPORT INFORMATION
  Report Type: Spontaneous
  Country: US (occurrence: None)
  Receive Date: 20230223
  Receipt Date: 20230223
  Transmission Date: 20230418
  Serious: No
  Sender: FDA-Public Use
  Company Number: US-ROCHE-3092675

PATIENT
  Sex: Female

DRUGS (3)
  1. XOLAIR [Suspect]
     Active Substance: OMALIZUMAB
     Indication: Idiopathic urticaria
     Dosage: LON 07/APR/2022 PATIENT RECEIVED LAST DOSE OF OMALIZUMAB AND ANTICIPATED DATE OF TREATMENT 04/MAY/20
     Route: 058
  2. XOLAIR [Suspect]
     Active Substance: OMALIZUMAB
  3. XOLAIR [Suspect]
     Active Substance: OMALIZUMAB

REACTIONS (5)
  - Conjunctivitis allergic [Unknown]
  - Dermatitis allergic [Unknown]
  - Seasonal allergy [Unknown]
  - Dermatitis contact [Unknown]
  - Allergy to metals [Unknown]
